FAERS Safety Report 15354532 (Version 1)
Quarter: 2018Q3

REPORT INFORMATION
  Report Type: Spontaneous
  Country: DE (occurrence: DE)
  Receive Date: 20180906
  Receipt Date: 20180906
  Transmission Date: 20181010
  Serious: Yes (Other)
  Sender: FDA-Public Use
  Company Number: DE-SUN PHARMACEUTICAL INDUSTRIES LTD-2018RR-183648

PATIENT
  Age: 48 Year
  Sex: Female
  Weight: 58 kg

DRUGS (1)
  1. CITALOPRAM [Suspect]
     Active Substance: CITALOPRAM HYDROBROMIDE
     Indication: DEPRESSION
     Dosage: 20 MG
     Route: 048
     Dates: start: 20180315

REACTIONS (2)
  - Muscle atrophy [Unknown]
  - Tendon rupture [Unknown]

NARRATIVE: CASE EVENT DATE: 20180621
